FAERS Safety Report 23653950 (Version 2)
Quarter: 2024Q3

REPORT INFORMATION
  Report Type: Spontaneous
  Country: FR (occurrence: FR)
  Receive Date: 20240320
  Receipt Date: 20240816
  Transmission Date: 20241017
  Serious: Yes (Other)
  Sender: SANDOZ
  Company Number: FR-EMA-DD-20240314-7482707-130728

PATIENT
  Age: 65 Year
  Sex: Male

DRUGS (8)
  1. BASILIXIMAB [Suspect]
     Active Substance: BASILIXIMAB
     Indication: Immunosuppressant drug therapy
     Route: 065
  2. BASILIXIMAB [Suspect]
     Active Substance: BASILIXIMAB
     Indication: Renal transplant
     Route: 065
  3. MYCOPHENOLATE MOFETIL [Suspect]
     Active Substance: MYCOPHENOLATE MOFETIL
     Indication: Immunosuppressant drug therapy
     Dosage: UNK, UNKNOWN FREQ.
     Route: 065
  4. MYCOPHENOLATE MOFETIL [Suspect]
     Active Substance: MYCOPHENOLATE MOFETIL
     Indication: Renal transplant
     Dosage: UNK, UNKNOWN FREQ.
     Route: 065
  5. PREDNISONE [Suspect]
     Active Substance: PREDNISONE
     Indication: Immunosuppressant drug therapy
     Route: 065
  6. PREDNISONE [Suspect]
     Active Substance: PREDNISONE
     Indication: Renal transplant
     Route: 065
  7. TACROLIMUS [Suspect]
     Active Substance: TACROLIMUS
     Indication: Immunosuppressant drug therapy
     Dosage: UNK UNK, ONCE DAILY
     Route: 048
     Dates: start: 201312
  8. TACROLIMUS [Suspect]
     Active Substance: TACROLIMUS
     Indication: Renal transplant

REACTIONS (2)
  - Post transplant lymphoproliferative disorder [Recovered/Resolved]
  - Lymphocytosis [Recovered/Resolved]

NARRATIVE: CASE EVENT DATE: 20131201
